FAERS Safety Report 20222341 (Version 2)
Quarter: 2025Q1

REPORT INFORMATION
  Report Type: Spontaneous
  Country: ES (occurrence: ES)
  Receive Date: 20211223
  Receipt Date: 20250203
  Transmission Date: 20250409
  Serious: Yes (Life-Threatening, Hospitalization)
  Sender: MYLAN
  Company Number: ES-MYLANLABS-2021M1094932

PATIENT
  Age: 32 Year
  Sex: Female

DRUGS (7)
  1. RANITIDINE [Suspect]
     Active Substance: RANITIDINE
     Indication: Gastrooesophageal reflux disease
     Route: 042
     Dates: start: 202008
  2. EPINEPHRINE [Suspect]
     Active Substance: EPINEPHRINE
     Indication: Anaphylactic reaction
     Route: 030
     Dates: start: 202008
  3. EPINEPHRINE [Suspect]
     Active Substance: EPINEPHRINE
     Indication: Stress cardiomyopathy
  4. EPINEPHRINE [Suspect]
     Active Substance: EPINEPHRINE
     Indication: Kounis syndrome
  5. EPINEPHRINE [Suspect]
     Active Substance: EPINEPHRINE
     Indication: Anaphylactic reaction
  6. METHYLPREDNISOLONE [Concomitant]
     Active Substance: METHYLPREDNISOLONE
     Indication: Anaphylactic reaction
     Route: 065
     Dates: start: 202008
  7. ACETAMINOPHEN [Concomitant]
     Active Substance: ACETAMINOPHEN
     Indication: Anaphylactic reaction
     Route: 065
     Dates: start: 202008

REACTIONS (7)
  - Anaphylactic reaction [Recovering/Resolving]
  - Stress cardiomyopathy [Recovering/Resolving]
  - Kounis syndrome [Recovering/Resolving]
  - Cardiac failure congestive [Recovered/Resolved]
  - Myocardial ischaemia [Recovered/Resolved]
  - Cardiogenic shock [Recovering/Resolving]
  - Drug ineffective [Unknown]

NARRATIVE: CASE EVENT DATE: 20200801
